FAERS Safety Report 10565988 (Version 1)
Quarter: 2014Q4

REPORT INFORMATION
  Report Type: Spontaneous
  Country: US (occurrence: None)
  Receive Date: 20141104
  Receipt Date: 20141104
  Transmission Date: 20150529
  Serious: Yes (Other)
  Sender: FDA-Public Use
  Company Number: None

PATIENT
  Age: 41 Year
  Sex: Male
  Weight: 72.58 kg

DRUGS (1)
  1. ATORVASTATIN [Suspect]
     Active Substance: ATORVASTATIN
     Indication: BLOOD CHOLESTEROL INCREASED
     Dosage: ATORVASTATIN 40MG ONCE DAILY TAKEN BY MOUTH
     Route: 048

REACTIONS (8)
  - Fatigue [None]
  - Pain in extremity [None]
  - Dyspepsia [None]
  - Asthenia [None]
  - Chromaturia [None]
  - Dizziness [None]
  - Rash erythematous [None]
  - Blood glucose abnormal [None]

NARRATIVE: CASE EVENT DATE: 20141101
